FAERS Safety Report 5422397-6 (Version None)
Quarter: 2007Q3

REPORT INFORMATION
  Report Type: 
  Country: None (occurrence: None)
  Receive Date: 20070822
  Receipt Date: 20070817
  Transmission Date: 20080115
  Serious: Yes (Hospitalization)
  Sender: FDA-Public Use
  Company Number: A0673140A

PATIENT
  Sex: Male

DRUGS (4)
  1. LAMICTAL [Suspect]
     Dosage: 400MGD UNKNOWN
     Route: 048
  2. ZONEGRAN [Concomitant]
     Route: 065
  3. DILANTIN [Concomitant]
     Route: 065
  4. KEPPRA [Concomitant]
     Route: 065

REACTIONS (6)
  - BLOOD UREA INCREASED [None]
  - BLOOD UREA NITROGEN/CREATININE RATIO INCREASED [None]
  - NEPHROLITHIASIS [None]
  - PROSTATE CANCER [None]
  - RENAL NEOPLASM [None]
  - SPLENIC RUPTURE [None]
